FAERS Safety Report 5367819-4 (Version None)
Quarter: 2007Q2

REPORT INFORMATION
  Report Type: 
  Country: None (occurrence: None)
  Receive Date: 20070622
  Receipt Date: 20070612
  Transmission Date: 20071010
  Serious: Yes (Death, Hospitalization)
  Sender: FDA-Public Use
  Company Number: KR-PFIZER INC-2006123781

PATIENT
  Sex: Male
  Weight: 52.5 kg

DRUGS (21)
  1. SU-011,248 [Suspect]
     Indication: METASTATIC RENAL CELL CARCINOMA
     Route: 048
     Dates: start: 20060922, end: 20061019
  2. MOSAPRIDE CITRATE [Concomitant]
     Route: 048
  3. MORPHINE SULFATE [Concomitant]
     Route: 048
     Dates: start: 20060916, end: 20060927
  4. ALL OTHER THERAPEUTIC PRODUCTS [Concomitant]
     Route: 048
  5. ROXITHROMYCIN [Concomitant]
     Route: 048
     Dates: start: 20060920, end: 20060920
  6. PROPACETAMOL [Concomitant]
     Route: 042
     Dates: start: 20060919, end: 20060920
  7. CEFTRIAXONE [Concomitant]
     Route: 042
     Dates: start: 20060919, end: 20061002
  8. ALBUMIN (HUMAN) [Concomitant]
     Route: 042
     Dates: start: 20060919, end: 20061004
  9. FAMOTIDINE [Concomitant]
     Route: 048
  10. MAGNESIUM OXIDE [Concomitant]
     Route: 048
  11. FUROSEMIDE [Concomitant]
     Route: 048
     Dates: start: 20060921, end: 20060921
  12. PHENIRAMINE MALEATE [Concomitant]
     Route: 042
     Dates: start: 20060921, end: 20060921
  13. FENTANYL CITRATE [Concomitant]
     Dates: start: 20060919
  14. TRAMADOL HCL [Concomitant]
     Route: 042
     Dates: start: 20060926, end: 20060930
  15. OXYCODONE HCL [Concomitant]
     Route: 048
     Dates: start: 20060927
  16. VITAMIN K1 [Concomitant]
     Route: 042
     Dates: start: 20061002, end: 20061002
  17. CALCIUM POLYSTYRENE SULFONATE [Concomitant]
     Route: 048
     Dates: start: 20061002
  18. ACETYLCYSTEINE [Concomitant]
     Route: 042
     Dates: start: 20061002
  19. METOCLOPRAMIDE [Concomitant]
     Route: 042
     Dates: start: 20061002, end: 20061002
  20. CALCIUM CHLORIDE [Concomitant]
     Route: 042
     Dates: start: 20061002, end: 20061002
  21. FUROSEMIDE [Concomitant]
     Route: 048
     Dates: start: 20061003

REACTIONS (7)
  - ASCITES [None]
  - CONFUSIONAL STATE [None]
  - DISEASE PROGRESSION [None]
  - METASTATIC RENAL CELL CARCINOMA [None]
  - PLEURAL EFFUSION [None]
  - PNEUMOTHORAX [None]
  - RENAL FAILURE ACUTE [None]
